FAERS Safety Report 11329802 (Version 1)
Quarter: 2015Q3

REPORT INFORMATION
  Report Type: Spontaneous
  Country: US (occurrence: None)
  Receive Date: 20150730
  Receipt Date: 20150730
  Transmission Date: 20151125
  Serious: No
  Sender: FDA-Public Use
  Company Number: None

PATIENT
  Age: 48 Year
  Sex: Female

DRUGS (20)
  1. DISTRIZOATE [Concomitant]
  2. CEFEPIME [Concomitant]
     Active Substance: CEFEPIME HYDROCHLORIDE
  3. DOCUSATE [Concomitant]
     Active Substance: DOCUSATE
  4. INSULIN ASPART [Concomitant]
     Active Substance: INSULIN ASPART
  5. ASPIRIN. [Concomitant]
     Active Substance: ASPIRIN
  6. CITRIC ACID SODIUM CITRATE [Concomitant]
  7. ITRACONAZOLE. [Concomitant]
     Active Substance: ITRACONAZOLE
  8. OXYCODONE [Concomitant]
     Active Substance: OXYCODONE
  9. RANITIDINE [Concomitant]
     Active Substance: RANITIDINE\RANITIDINE HYDROCHLORIDE
  10. VALGANCICLOVIR [Concomitant]
     Active Substance: VALGANCICLOVIR
  11. TACROLIMUS. [Suspect]
     Active Substance: TACROLIMUS
     Route: 048
  12. INSULIN GLARGINE [Concomitant]
     Active Substance: INSULIN GLARGINE
  13. METOPROLOL [Concomitant]
     Active Substance: METOPROLOL
  14. MULTIVITAMIN [Concomitant]
     Active Substance: VITAMINS
  15. ATOVAQUONA [Concomitant]
  16. FLUDROCORTISONE [Concomitant]
     Active Substance: FLUDROCORTISONE
  17. ACETAMINOPHEN. [Concomitant]
     Active Substance: ACETAMINOPHEN
  18. FUROSEMIDE. [Concomitant]
     Active Substance: FUROSEMIDE
  19. MYCOPHENOLATE [Concomitant]
     Active Substance: MYCOPHENOLIC ACID
  20. PRAVASTATIN [Concomitant]
     Active Substance: PRAVASTATIN\PRAVASTATIN SODIUM

REACTIONS (1)
  - Blood potassium increased [None]

NARRATIVE: CASE EVENT DATE: 20150202
